FAERS Safety Report 23978052 (Version 1)
Quarter: 2024Q2

REPORT INFORMATION
  Report Type: Spontaneous
  Country: US (occurrence: US)
  Receive Date: 20240614
  Receipt Date: 20240614
  Transmission Date: 20240716
  Serious: No
  Sender: FDA-Public Use
  Company Number: ENDB23-04580

PATIENT
  Sex: Male

DRUGS (3)
  1. SUPPRELIN LA [Suspect]
     Active Substance: HISTRELIN ACETATE
     Indication: Ill-defined disorder
     Dosage: 50 MILLIGRAM (ONE UNIT), ONCE A YEAR
     Route: 058
  2. SUPPRELIN LA [Suspect]
     Active Substance: HISTRELIN ACETATE
     Indication: Ill-defined disorder
     Dosage: 50 MILLIGRAM (ONE UNIT), ONCE A YEAR
     Route: 058
  3. SUPPRELIN LA [Suspect]
     Active Substance: HISTRELIN ACETATE
     Indication: Ill-defined disorder
     Dosage: 50 MILLIGRAM (ONE UNIT), ONCE A YEAR
     Route: 058

REACTIONS (2)
  - Drug effect less than expected [Unknown]
  - Off label use [Unknown]
